FAERS Safety Report 20543897 (Version 1)
Quarter: 2022Q1

REPORT INFORMATION
  Report Type: Spontaneous
  Country: CN (occurrence: CN)
  Receive Date: 20220303
  Receipt Date: 20220303
  Transmission Date: 20220423
  Serious: Yes (Hospitalization)
  Sender: FDA-Public Use
  Company Number: CN-ABBVIE-22K-035-4297424-00

PATIENT
  Age: 22 Year
  Sex: Male
  Weight: 100 kg

DRUGS (2)
  1. VALPROATE SODIUM [Suspect]
     Active Substance: VALPROATE SODIUM
     Indication: Bipolar disorder
     Route: 048
     Dates: start: 20190604, end: 20190607
  2. OLANZAPINE [Concomitant]
     Active Substance: OLANZAPINE
     Indication: Product used for unknown indication
     Dates: start: 20190603, end: 20190605

REACTIONS (2)
  - Hepatic function abnormal [Unknown]
  - Obesity [Unknown]

NARRATIVE: CASE EVENT DATE: 20190718
